FAERS Safety Report 13328731 (Version 1)
Quarter: 2017Q1

REPORT INFORMATION
  Report Type: Spontaneous
  Country: US (occurrence: US)
  Receive Date: 20170311
  Receipt Date: 20170311
  Transmission Date: 20170428
  Serious: Yes (Other)
  Sender: FDA-Public Use
  Company Number: None

PATIENT
  Age: 35 Year
  Sex: Female
  Weight: 99 kg

DRUGS (2)
  1. DICLOFENAC [Concomitant]
     Active Substance: DICLOFENAC
  2. WARFARIN [Suspect]
     Active Substance: WARFARIN
     Indication: THROMBOPHLEBITIS SUPERFICIAL
     Dosage: ?          QUANTITY:1 TABLET(S);?
     Route: 048
     Dates: start: 20170125

REACTIONS (5)
  - Back pain [None]
  - International normalised ratio decreased [None]
  - Renal pain [None]
  - Kidney infection [None]
  - Diet noncompliance [None]

NARRATIVE: CASE EVENT DATE: 20170303
